FAERS Safety Report 6296395-7 (Version None)
Quarter: 2009Q3

REPORT INFORMATION
  Report Type: 
  Country: None (occurrence: None)
  Receive Date: 20090804
  Receipt Date: 20090610
  Transmission Date: 20100115
  Serious: Yes (Other)
  Sender: FDA-Public Use
  Company Number: US-PURDUE-USA-2009-0039021

PATIENT
  Sex: Male
  Weight: 66.667 kg

DRUGS (2)
  1. OXYCONTIN [Suspect]
     Indication: PAIN
     Dosage: 80 MG, BID
     Dates: start: 20020213, end: 20080901
  2. OXYCONTIN [Suspect]
     Indication: ANALGESIA

REACTIONS (5)
  - DENTAL CARIES [None]
  - DEPRESSION [None]
  - DRY MOUTH [None]
  - HYPERHIDROSIS [None]
  - WEIGHT DECREASED [None]
